FAERS Safety Report 19147778 (Version 1)
Quarter: 2021Q2

REPORT INFORMATION
  Report Type: Spontaneous
  Country: TW (occurrence: TW)
  Receive Date: 20210416
  Receipt Date: 20210416
  Transmission Date: 20210717
  Serious: Yes (Death, Other)
  Sender: FDA-Public Use
  Company Number: TW-GUERBET-TW-20210003

PATIENT
  Age: 58 Year
  Sex: Female

DRUGS (4)
  1. CISPLATIN. [Suspect]
     Active Substance: CISPLATIN
     Indication: CHEMOTHERAPY
     Route: 065
  2. LIPIODOL [Suspect]
     Active Substance: ETHIODIZED OIL
     Indication: THERAPEUTIC EMBOLISATION
     Dosage: 0.5 ML OF NBCA MIXED WITH 1 ML OF LIPIODOL
     Route: 013
     Dates: start: 20190105, end: 20190105
  3. PACLITAXEL. [Suspect]
     Active Substance: PACLITAXEL
     Indication: CHEMOTHERAPY
     Route: 065
  4. N?BUTYL?2?CYANOACRYLATE [Suspect]
     Active Substance: UNSPECIFIED INGREDIENT
     Indication: THERAPEUTIC EMBOLISATION
     Dosage: 0.5 ML OF NBCA MIXED WITH 1 ML OF LIPIODOL
     Route: 013
     Dates: start: 20190105, end: 20190105

REACTIONS (3)
  - Oesophageal perforation [Unknown]
  - Multiple organ dysfunction syndrome [Fatal]
  - Sepsis [Fatal]
